FAERS Safety Report 24689706 (Version 1)
Quarter: 2024Q4

REPORT INFORMATION
  Report Type: Report from Study
  Country: US (occurrence: US)
  Receive Date: 20241203
  Receipt Date: 20241203
  Transmission Date: 20250114
  Serious: No
  Sender: STALLERGENES
  Company Number: US-AIMMUNE THERAPEUTICS, INC.-2024AIMT01163

PATIENT
  Age: 15 Year
  Sex: Female

DRUGS (2)
  1. PALFORZIA [Suspect]
     Active Substance: PEANUT
     Indication: Food allergy
     Dosage: IDE (0.5 - 6.0 MG)
  2. PALFORZIA [Suspect]
     Active Substance: PEANUT
     Dosage: IDE (0.5 - 6.0 MG), ONCE, LAST DOSE PRIOR TO EVENTS

REACTIONS (4)
  - Drug ineffective [Unknown]
  - Ill-defined disorder [Unknown]
  - Drug intolerance [Unknown]
  - Throat irritation [Unknown]
